FAERS Safety Report 8366708-0 (Version None)
Quarter: 2012Q2

REPORT INFORMATION
  Report Type: 
  Country: None (occurrence: None)
  Receive Date: 20120517
  Receipt Date: 20120514
  Transmission Date: 20120825
  Serious: Yes (Life-Threatening, Hospitalization)
  Sender: FDA-Public Use
  Company Number: FR-PFIZER INC-2012117370

PATIENT
  Age: 43 Year
  Sex: Male

DRUGS (9)
  1. METHADONE HCL [Suspect]
     Indication: DRUG DEPENDENCE
     Dosage: 60 MG, 1X/DAY
     Route: 048
     Dates: start: 20110301
  2. POTASSIUM CHLORIDE [Concomitant]
     Indication: HYPOKALAEMIA
     Dosage: 1200 MG, 2X/DAY
     Route: 048
     Dates: start: 20111021
  3. VFEND [Suspect]
     Indication: MENINGITIS CANDIDA
     Dosage: 200 MG, 2X/DAY
     Route: 048
     Dates: start: 20111021
  4. PREDNISONE TAB [Concomitant]
     Dosage: 30 MG, 1X/DAY
     Route: 048
     Dates: start: 20111010
  5. IMOVANE [Concomitant]
     Indication: INSOMNIA
     Dosage: 7.5 MG, 1X/DAY
     Route: 048
     Dates: start: 20111021
  6. CACIT D3 [Concomitant]
     Indication: CALCIUM DEFICIENCY
     Dosage: 1 DF, 1X/DAY
     Route: 048
     Dates: start: 20111021
  7. TRIMEPRAZINE TARTRATE [Concomitant]
     Dosage: 20 GTT, 1X/DAY (EVENING)
     Route: 048
     Dates: start: 20110101
  8. ATARAX [Concomitant]
     Dosage: 50 MG, 1X/DAY
     Route: 048
     Dates: start: 20110101
  9. ACETAMINOPHEN AND TRAMADOL HCL [Suspect]
     Indication: PAIN
     Dosage: 2 DF, 3X/DAY
     Route: 048
     Dates: start: 20110816

REACTIONS (3)
  - ESCHERICHIA SEPSIS [None]
  - PYREXIA [None]
  - CHOLECYSTITIS [None]
